FAERS Safety Report 23298068 (Version 3)
Quarter: 2024Q3

REPORT INFORMATION
  Report Type: Spontaneous
  Country: CA (occurrence: CA)
  Receive Date: 20231214
  Receipt Date: 20240821
  Transmission Date: 20241016
  Serious: Yes (Death, Hospitalization, Other)
  Sender: SANDOZ
  Company Number: CA-SANDOZ-SDZ2023CA066967

PATIENT
  Age: 64 Year
  Sex: Male

DRUGS (7)
  1. DEXAMETHASONE [Suspect]
     Active Substance: DEXAMETHASONE
     Indication: COVID-19
     Dosage: 6 MG, QD
     Route: 042
  2. HYDROXYCHLOROQUINE [Suspect]
     Active Substance: HYDROXYCHLOROQUINE
     Indication: Rheumatoid arthritis
     Dosage: 200 MG, QD
     Route: 048
  3. METHOTREXATE [Suspect]
     Active Substance: METHOTREXATE
     Indication: Rheumatoid arthritis
     Dosage: 10 MG, QW
     Route: 058
  4. SULFASALAZINE [Suspect]
     Active Substance: SULFASALAZINE
     Dosage: 1000 MG, QD
     Route: 048
  5. SULFASALAZINE [Suspect]
     Active Substance: SULFASALAZINE
     Indication: Rheumatoid arthritis
     Dosage: 500 MG, BID (FOR 6 YEARS)
     Route: 048
  6. AZITHROMYCIN [Concomitant]
     Active Substance: AZITHROMYCIN
     Indication: Pneumonia bacterial
     Dosage: UNK
     Route: 065
  7. CEFTRIAXONE [Concomitant]
     Active Substance: CEFTRIAXONE\CEFTRIAXONE SODIUM
     Indication: Pneumonia bacterial
     Dosage: UNK
     Route: 065

REACTIONS (3)
  - Sepsis [Fatal]
  - Disseminated strongyloidiasis [Fatal]
  - Strongyloidiasis [Fatal]
